FAERS Safety Report 17266971 (Version 1)
Quarter: 2020Q1

REPORT INFORMATION
  Report Type: Spontaneous
  Country: JP (occurrence: JP)
  Receive Date: 20200114
  Receipt Date: 20200114
  Transmission Date: 20200409
  Serious: Yes (Other)
  Sender: FDA-Public Use
  Company Number: JP-PFIZER INC-2020009756

PATIENT
  Age: 8 Decade
  Sex: Male

DRUGS (1)
  1. ZYVOX [Suspect]
     Active Substance: LINEZOLID
     Dosage: UNK

REACTIONS (5)
  - Pneumonia [Unknown]
  - Platelet count decreased [Unknown]
  - Renal impairment [Unknown]
  - Disseminated intravascular coagulation [Unknown]
  - Staphylococcal infection [Unknown]
